FAERS Safety Report 4870401-6 (Version None)
Quarter: 2005Q4

REPORT INFORMATION
  Report Type: 
  Country: None (occurrence: None)
  Receive Date: 20051228
  Receipt Date: 20051209
  Transmission Date: 20060501
  Serious: Yes (Hospitalization, Other)
  Sender: FDA-Public Use
  Company Number: US200512002009

PATIENT
  Age: 62 Year
  Sex: Female

DRUGS (3)
  1. GEMZAR [Suspect]
     Indication: GASTRIC CANCER
     Dosage: 600 MG/M2, OTHER, INTRAVENOUS
     Route: 042
     Dates: start: 20020830, end: 20030101
  2. OXALIPLATIN (OXALIPLATIN) [Suspect]
     Dosage: 65 MG/M2
     Dates: start: 20041001
  3. CAPECITABINE (CAPECITABINE) [Suspect]

REACTIONS (6)
  - ASTHENIA [None]
  - CATHETER RELATED INFECTION [None]
  - INFECTION [None]
  - METASTASES TO LIVER [None]
  - PARAESTHESIA [None]
  - RADIATION MYELOPATHY [None]
